FAERS Safety Report 26204332 (Version 1)
Quarter: 2025Q4

REPORT INFORMATION
  Report Type: Spontaneous
  Country: EU (occurrence: EU)
  Receive Date: 20251226
  Receipt Date: 20251226
  Transmission Date: 20260118
  Serious: Yes (Other)
  Sender: APELLIS PHARMACEUTICALS
  Company Number: EU-APELLIS-2025-APL-0001267

PATIENT

DRUGS (1)
  1. SYFOVRE [Suspect]
     Active Substance: PEGCETACOPLAN
     Indication: Dry age-related macular degeneration
     Dosage: ADMINISTERED TO BOTH EYES AT INTERVALS OF TWO MONTHS
     Dates: start: 2025

REACTIONS (5)
  - Macular oedema [Unknown]
  - Vitreous floaters [Unknown]
  - Neovascular age-related macular degeneration [Unknown]
  - Condition aggravated [Unknown]
  - Eye haemorrhage [Unknown]
